FAERS Safety Report 6895575-7 (Version None)
Quarter: 2010Q3

REPORT INFORMATION
  Report Type: 
  Country: None (occurrence: None)
  Receive Date: 20100802
  Receipt Date: 20100727
  Transmission Date: 20110219
  Serious: Yes (Life-Threatening, Hospitalization)
  Sender: FDA-Public Use
  Company Number: PHHO2010DE07670

PATIENT
  Sex: Male

DRUGS (4)
  1. CERTICAN [Suspect]
     Indication: LIVER TRANSPLANT
     Dosage: 3MG / DAY
     Route: 048
     Dates: start: 20071120, end: 20100406
  2. CERTICAN [Suspect]
     Dosage: UNK
     Route: 048
     Dates: end: 20100415
  3. SIMULECT [Suspect]
     Indication: LIVER TRANSPLANT
  4. PROGRAF [Concomitant]
     Dosage: UNK
     Dates: start: 20100330

REACTIONS (1)
  - LUNG ADENOCARCINOMA [None]
